FAERS Safety Report 5989748-5 (Version None)
Quarter: 2008Q4

REPORT INFORMATION
  Report Type: 
  Country: None (occurrence: None)
  Receive Date: 20081209
  Receipt Date: 20081128
  Transmission Date: 20090506
  Serious: Yes (Death, Other)
  Sender: FDA-Public Use
  Company Number: GXKR2008JP11380

PATIENT
  Age: 83 Year
  Sex: Male

DRUGS (4)
  1. METHYLPREDNISOLONE 4MG TAB [Suspect]
     Indication: ORGANISING PNEUMONIA
     Dosage: 500 MG/DAY
  2. PREDNISOLONE [Suspect]
     Indication: ORGANISING PNEUMONIA
     Dosage: 1 MQ/KQ/DAY
  3. METENOLONE (METENOLONE) [Concomitant]
  4. VITAMIN K2 (MENAQUINONE) [Concomitant]

REACTIONS (11)
  - ASCITES [None]
  - ASPIRATION [None]
  - BACTERAEMIA [None]
  - DISSEMINATED CRYPTOCOCCOSIS [None]
  - ENTEROCOCCAL INFECTION [None]
  - INFECTION IN AN IMMUNOCOMPROMISED HOST [None]
  - MALNUTRITION [None]
  - PLEURAL EFFUSION [None]
  - RENAL FAILURE [None]
  - RESPIRATORY FAILURE [None]
  - STAPHYLOCOCCAL INFECTION [None]
